FAERS Safety Report 12907097 (Version 1)
Quarter: 2016Q4

REPORT INFORMATION
  Report Type: Spontaneous
  Country: US (occurrence: US)
  Receive Date: 20161103
  Receipt Date: 20161103
  Transmission Date: 20170207
  Serious: Yes (Life-Threatening, Hospitalization, Other)
  Sender: FDA-Public Use
  Company Number: US-OTSUKA-2016_025460

PATIENT
  Age: 65 Year
  Sex: Male

DRUGS (1)
  1. DACOGEN [Suspect]
     Active Substance: DECITABINE
     Indication: ACUTE MYELOID LEUKAEMIA
     Dosage: UNK
     Route: 065

REACTIONS (6)
  - Enterococcal infection [Unknown]
  - Sepsis [Unknown]
  - Acute myeloid leukaemia [Unknown]
  - Pancytopenia [Unknown]
  - Impaired quality of life [Unknown]
  - Renal failure [Unknown]
